FAERS Safety Report 7490800-6 (Version None)
Quarter: 2011Q2

REPORT INFORMATION
  Report Type: 
  Country: None (occurrence: None)
  Receive Date: 20110519
  Receipt Date: 20110512
  Transmission Date: 20111010
  Serious: Yes (Other)
  Sender: FDA-Public Use
  Company Number: LT-SANOFI-AVENTIS-2011SA029954

PATIENT

DRUGS (2)
  1. MULTAQ [Suspect]
     Route: 048
  2. CORDARONE [Suspect]
     Route: 048

REACTIONS (1)
  - HYPERTHYROIDISM [None]
